FAERS Safety Report 10566581 (Version 1)
Quarter: 2014Q4

REPORT INFORMATION
  Report Type: Spontaneous
  Country: DE (occurrence: DE)
  Receive Date: 20141105
  Receipt Date: 20141105
  Transmission Date: 20150529
  Serious: Yes (Other)
  Sender: FDA-Public Use
  Company Number: DE-PFIZER INC-2014302041

PATIENT
  Sex: Female
  Weight: 3.22 kg

DRUGS (1)
  1. SERTRALINE HCL [Suspect]
     Active Substance: SERTRALINE HYDROCHLORIDE
     Indication: DEPRESSION
     Dosage: 100 MG, DAILY 0. - 37. GESTATIONAL WEEK
     Route: 064

REACTIONS (4)
  - Serum ferritin increased [Not Recovered/Not Resolved]
  - Failure to thrive [Recovered/Resolved]
  - Blood bilirubin increased [Unknown]
  - Haemochromatosis [Unknown]

NARRATIVE: CASE EVENT DATE: 20130529
